FAERS Safety Report 10351591 (Version 1)
Quarter: 2014Q3

REPORT INFORMATION
  Report Type: Other
  Country: ES (occurrence: ES)
  Receive Date: 20140730
  Receipt Date: 20140730
  Transmission Date: 20150326
  Serious: Yes (Other)
  Sender: FDA-Public Use
  Company Number: ES-BRISTOL-MYERS SQUIBB COMPANY-21235171

PATIENT
  Age: 41 Year
  Sex: Male

DRUGS (7)
  1. CYTARABINE. [Suspect]
     Active Substance: CYTARABINE
     Indication: T-CELL LYMPHOMA
     Dosage: SUSPENSION
  2. METHOTREXATE [Suspect]
     Active Substance: METHOTREXATE
     Indication: T-CELL LYMPHOMA
     Dosage: 1 DF:3 G/M2 ON DAY5.
     Route: 037
  3. LEUCOVORIN [Concomitant]
     Active Substance: LEUCOVORIN
     Indication: T-CELL LYMPHOMA
  4. MESNA. [Concomitant]
     Active Substance: MESNA
     Indication: T-CELL LYMPHOMA
  5. IFOSFAMIDE. [Suspect]
     Active Substance: IFOSFAMIDE
     Indication: T-CELL LYMPHOMA
     Dosage: SUSPENSION
  6. HYDROCORTISONE. [Suspect]
     Active Substance: HYDROCORTISONE
     Indication: T-CELL LYMPHOMA
  7. ETOPOSIDE. [Suspect]
     Active Substance: ETOPOSIDE
     Indication: T-CELL LYMPHOMA
     Dosage: SUSPENSION

REACTIONS (1)
  - Neurological symptom [Recovering/Resolving]
